FAERS Safety Report 4539326-X (Version None)
Quarter: 2004Q4

REPORT INFORMATION
  Report Type: 
  Country: None (occurrence: None)
  Receive Date: 20041227
  Receipt Date: 20041227
  Transmission Date: 20050328
  Serious: No
  Sender: FDA-Public Use
  Company Number: None

PATIENT
  Age: 29 Year
  Sex: Male
  Weight: 99.7913 kg

DRUGS (2)
  1. ALEVE [Suspect]
     Indication: HEADACHE
     Dosage: 1-2 TABLETS  5X IN 3 YEARS ORAL
     Route: 048
     Dates: start: 19990101, end: 20021222
  2. ALEVE [Suspect]
     Indication: MYALGIA
     Dosage: 1-2 TABLETS  5X IN 3 YEARS ORAL
     Route: 048
     Dates: start: 19990101, end: 20021222

REACTIONS (3)
  - GENITAL LESION [None]
  - SYPHILIS [None]
  - URETHRAL HAEMORRHAGE [None]
